FAERS Safety Report 15359086 (Version 2)
Quarter: 2019Q1

REPORT INFORMATION
  Report Type: Report from Study
  Country: US (occurrence: US)
  Receive Date: 20180906
  Receipt Date: 20190314
  Transmission Date: 20190417
  Serious: No
  Sender: FDA-Public Use
  Company Number: PHEH2018US035867

PATIENT
  Age: 12 Year
  Sex: Female

DRUGS (1)
  1. OMNITROPE [Suspect]
     Active Substance: SOMATROPIN
     Indication: GROWTH RETARDATION
     Dosage: 0.8 MG, QD
     Route: 058
     Dates: start: 20190304, end: 20190307

REACTIONS (6)
  - Injection site pain [Unknown]
  - Thirst [Unknown]
  - Headache [Unknown]
  - Device issue [Unknown]
  - Nervousness [Unknown]
  - Injection site bruising [Unknown]

NARRATIVE: CASE EVENT DATE: 20190306
